FAERS Safety Report 23668845 (Version 1)
Quarter: 2024Q1

REPORT INFORMATION
  Report Type: Spontaneous
  Country: US (occurrence: US)
  Receive Date: 20240325
  Receipt Date: 20240325
  Transmission Date: 20240410
  Serious: Yes (Other)
  Sender: FDA-Public Use
  Company Number: US-002147023-NVSC2024US062785

PATIENT
  Sex: Male

DRUGS (2)
  1. PROMACTA [Suspect]
     Active Substance: ELTROMBOPAG OLAMINE
     Indication: Immune thrombocytopenia
     Dosage: 12.5 MG, QD
     Route: 048
     Dates: start: 202402
  2. PROMACTA [Suspect]
     Active Substance: ELTROMBOPAG OLAMINE

REACTIONS (1)
  - Platelet count decreased [Unknown]
